FAERS Safety Report 8104367 (Version 3)
Quarter: 2013Q4

REPORT INFORMATION
  Report Type: Spontaneous
  Country: US (occurrence: US)
  Receive Date: 20110824
  Receipt Date: 20131119
  Transmission Date: 20140711
  Serious: Yes (Hospitalization)
  Sender: FDA-Public Use
  Company Number: US-GLAXOSMITHKLINE-A0915718A

PATIENT
  Age: 66 Year
  Sex: Female
  Weight: 84.5 kg

DRUGS (1)
  1. AVANDIA [Suspect]
     Indication: DIABETES MELLITUS
     Dosage: 8MG PER DAY
     Route: 048
     Dates: start: 200406, end: 200703

REACTIONS (8)
  - Cerebrovascular accident [Unknown]
  - Bradycardia [Unknown]
  - Cardiac disorder [Unknown]
  - Cardiovascular disorder [Unknown]
  - Neuralgia [Unknown]
  - Pain [Unknown]
  - Arteriosclerosis [Unknown]
  - Cardiac pacemaker insertion [Unknown]
